FAERS Safety Report 4691174-6 (Version None)
Quarter: 2005Q2

REPORT INFORMATION
  Report Type: 
  Country: None (occurrence: None)
  Receive Date: 20050610
  Receipt Date: 20050606
  Transmission Date: 20051028
  Serious: No
  Sender: FDA-Public Use
  Company Number: A001-002-006518

PATIENT
  Age: 67 Year
  Sex: Female
  Weight: 47 kg

DRUGS (4)
  1. ARICEPT [Suspect]
     Indication: MEMORY IMPAIRMENT
     Dosage: 5 MG, 1 IN 1 D, ORAL
     Route: 048
     Dates: start: 20050501
  2. LIPITOR [Concomitant]
  3. SYNTHROID [Concomitant]
  4. VITAMINS (VITAMINS) [Concomitant]

REACTIONS (1)
  - HEART RATE IRREGULAR [None]
